FAERS Safety Report 23247077 (Version 1)
Quarter: 2023Q4

REPORT INFORMATION
  Report Type: Spontaneous
  Country: US (occurrence: US)
  Receive Date: 20231130
  Receipt Date: 20231130
  Transmission Date: 20240110
  Serious: No
  Sender: FDA-Public Use
  Company Number: US-NOVOPROD-1030043

PATIENT
  Sex: Female

DRUGS (1)
  1. TRESIBA [Suspect]
     Active Substance: INSULIN DEGLUDEC
     Indication: Latent autoimmune diabetes in adults
     Dosage: 9U ONCE A DAY
     Route: 058
     Dates: start: 202209

REACTIONS (5)
  - Increased appetite [Unknown]
  - Abdominal distension [Unknown]
  - Weight increased [Unknown]
  - Injection site bruising [Unknown]
  - Product use in unapproved indication [Unknown]
